FAERS Safety Report 20920104 (Version 1)
Quarter: 2022Q2

REPORT INFORMATION
  Report Type: Spontaneous
  Country: US (occurrence: None)
  Receive Date: 20220604
  Receipt Date: 20220604
  Transmission Date: 20220721
  Serious: Yes (Death, Hospitalization)
  Sender: FDA-Public Use
  Company Number: None

PATIENT
  Age: 3 Year
  Sex: Male
  Weight: 12.5 kg

DRUGS (11)
  1. CYCLOPHOSPHAMIDE [Suspect]
     Active Substance: CYCLOPHOSPHAMIDE
     Dates: end: 20211202
  2. DAUNORUBICIN [Suspect]
     Active Substance: DAUNORUBICIN
     Dates: end: 20210423
  3. DOXORUBICIN HYDROCHLORIDE [Suspect]
     Active Substance: DOXORUBICIN HYDROCHLORIDE
     Dates: end: 20211111
  4. METHOTREXATE [Suspect]
     Active Substance: METHOTREXATE
     Dates: end: 20220329
  5. VINCRISTINE SULFATE [Suspect]
     Active Substance: VINCRISTINE SULFATE
     Dates: end: 20220329
  6. CYTARABINE [Suspect]
     Active Substance: CYTARABINE
     Dates: end: 20211216
  7. DEXAMETHASONE [Suspect]
     Active Substance: DEXAMETHASONE
     Dates: end: 20211201
  8. LEUCOVORIN CALCIUM [Suspect]
     Active Substance: LEUCOVORIN CALCIUM
     Dates: end: 20211213
  9. MERCAPTOPURINE [Suspect]
     Active Substance: MERCAPTOPURINE
     Dates: end: 20211021
  10. ONCASPAR [Suspect]
     Active Substance: PEGASPARGASE
     Dates: end: 20211217
  11. THIOGUANINE ANHYDROUS [Suspect]
     Active Substance: THIOGUANINE ANHYDROUS
     Dates: end: 20211216

REACTIONS (15)
  - White blood cell count increased [None]
  - Platelet count decreased [None]
  - Pyrexia [None]
  - Gastroenteritis [None]
  - Nasal congestion [None]
  - Rhinorrhoea [None]
  - General physical health deterioration [None]
  - Respiratory distress [None]
  - Intra-abdominal fluid collection [None]
  - Intra-abdominal haemorrhage [None]
  - Abdominal infection [None]
  - Ascites [None]
  - Norovirus test positive [None]
  - Leukaemia recurrent [None]
  - Haemophagocytic lymphohistiocytosis [None]

NARRATIVE: CASE EVENT DATE: 20220420
